FAERS Safety Report 14529084 (Version 1)
Quarter: 2018Q1

REPORT INFORMATION
  Report Type: Spontaneous
  Country: US (occurrence: US)
  Receive Date: 20180214
  Receipt Date: 20180214
  Transmission Date: 20180509
  Serious: No
  Sender: FDA-Public Use
  Company Number: US-PFIZER INC-2018062518

PATIENT
  Age: 35 Year
  Sex: Female

DRUGS (1)
  1. METHOTREXATE SODIUM. [Suspect]
     Active Substance: METHOTREXATE SODIUM
     Dosage: UNK
     Dates: start: 20150918, end: 20151022

REACTIONS (3)
  - Rash [Unknown]
  - Skin hypopigmentation [Unknown]
  - Skin discolouration [Unknown]

NARRATIVE: CASE EVENT DATE: 2015
